FAERS Safety Report 8883471 (Version 2)
Quarter: 2012Q4

REPORT INFORMATION
  Report Type: 
  Country: JP (occurrence: JP)
  Receive Date: 20121102
  Receipt Date: 20121121
  Transmission Date: 20130627
  Serious: Yes (Other)
  Sender: FDA-Public Use
  Company Number: JP-MERCK-1210JPN014662

PATIENT
  Age: 42 Year
  Sex: Male

DRUGS (5)
  1. GLACTIV [Suspect]
     Indication: TYPE 2 DIABETES MELLITUS
     Dosage: 50 mg, qd
     Route: 048
     Dates: start: 20121011, end: 20121012
  2. NORVASC OD [Concomitant]
  3. LIPITOR [Concomitant]
  4. EPADEL S [Concomitant]
  5. MICOMBI [Concomitant]

REACTIONS (1)
  - Oropharyngeal pain [Recovered/Resolved]
